FAERS Safety Report 14646642 (Version 7)
Quarter: 2021Q4

REPORT INFORMATION
  Report Type: Report from Study
  Country: BR (occurrence: BR)
  Receive Date: 20180316
  Receipt Date: 20211023
  Transmission Date: 20220303
  Serious: Yes (Other)
  Sender: FDA-Public Use
  Company Number: PHHY2018BR023296

PATIENT
  Age: 50 Year
  Sex: Male
  Weight: 99 kg

DRUGS (14)
  1. COSENTYX [Suspect]
     Active Substance: SECUKINUMAB
     Indication: Psoriatic arthropathy
     Dosage: 300 MG, QW
     Route: 058
     Dates: start: 20180112
  2. COSENTYX [Suspect]
     Active Substance: SECUKINUMAB
     Indication: Psoriasis
     Dosage: 300 MG, QW
     Route: 058
  3. COSENTYX [Suspect]
     Active Substance: SECUKINUMAB
     Dosage: 300 MG, QW
     Route: 058
     Dates: start: 20180126
  4. COSENTYX [Suspect]
     Active Substance: SECUKINUMAB
     Dosage: 300 MG, QW
     Route: 058
     Dates: start: 20180202
  5. COSENTYX [Suspect]
     Active Substance: SECUKINUMAB
     Dosage: 300 MG, QW
     Route: 058
     Dates: start: 20180209
  6. COSENTYX [Suspect]
     Active Substance: SECUKINUMAB
     Dosage: 300 MG, QMO
     Route: 058
     Dates: start: 20180216
  7. COSENTYX [Suspect]
     Active Substance: SECUKINUMAB
     Dosage: UNK
     Route: 065
     Dates: start: 20190411
  8. COSENTYX [Suspect]
     Active Substance: SECUKINUMAB
     Dosage: UNK
     Route: 065
     Dates: start: 201905
  9. COSENTYX [Suspect]
     Active Substance: SECUKINUMAB
     Dosage: UNK
     Route: 065
     Dates: start: 20190611
  10. COSENTYX [Suspect]
     Active Substance: SECUKINUMAB
     Dosage: UNK
     Route: 065
     Dates: start: 20190711
  11. COSENTYX [Suspect]
     Active Substance: SECUKINUMAB
     Dosage: 300 MG
     Route: 058
     Dates: start: 20180112
  12. COSENTYX [Suspect]
     Active Substance: SECUKINUMAB
     Dosage: 300 MG
     Route: 065
     Dates: start: 20211013
  13. LOSARTAN POTASSIUM [Concomitant]
     Active Substance: LOSARTAN POTASSIUM
     Indication: Hypertension
     Dosage: 2 DF, QD
     Route: 048
  14. GLIFAGE [Concomitant]
     Active Substance: METFORMIN HYDROCHLORIDE
     Indication: Diabetes mellitus
     Dosage: 2 DF, QD
     Route: 048

REACTIONS (27)
  - Myalgia [Not Recovered/Not Resolved]
  - Hypoaesthesia [Not Recovered/Not Resolved]
  - Chest pain [Not Recovered/Not Resolved]
  - Blood pressure increased [Unknown]
  - Blood glucose increased [Unknown]
  - Blood creatine phosphokinase increased [Not Recovered/Not Resolved]
  - Grip strength decreased [Unknown]
  - Finger deformity [Unknown]
  - Weight decreased [Unknown]
  - Spinal disorder [Unknown]
  - Mobility decreased [Unknown]
  - Screaming [Unknown]
  - Arthralgia [Unknown]
  - Crying [Unknown]
  - Macule [Unknown]
  - Inflammation [Unknown]
  - Electric shock [Unknown]
  - Mass [Unknown]
  - Skin haemorrhage [Unknown]
  - Scratch [Unknown]
  - Somnolence [Unknown]
  - Therapeutic response increased [Unknown]
  - Resorption bone increased [Not Recovered/Not Resolved]
  - Pain [Unknown]
  - Psoriasis [Not Recovered/Not Resolved]
  - Product storage error [Not Recovered/Not Resolved]
  - Therapeutic product effect incomplete [Unknown]

NARRATIVE: CASE EVENT DATE: 20180219
